FAERS Safety Report 9595363 (Version 1)
Quarter: 2013Q4

REPORT INFORMATION
  Report Type: Spontaneous
  Country: US (occurrence: US)
  Receive Date: 20131004
  Receipt Date: 20131004
  Transmission Date: 20140711
  Serious: No
  Sender: FDA-Public Use
  Company Number: US-B.I. PHARMACEUTICALS,INC./RIDGEFIELD-2013-BI-30372BP

PATIENT
  Age: 84 Year
  Sex: Female

DRUGS (11)
  1. PRADAXA [Suspect]
     Indication: CEREBROVASCULAR ACCIDENT PROPHYLAXIS
     Dosage: 300 MG
     Route: 048
     Dates: start: 20130626, end: 20130904
  2. PRADAXA [Suspect]
     Indication: ATRIAL FIBRILLATION
  3. MULTIVITAMIN [Concomitant]
  4. BYSTOLIC [Concomitant]
  5. VITAMIN D [Concomitant]
  6. PANTOPRAZOLE [Concomitant]
  7. VITAMIN B12 [Concomitant]
  8. OMEGA 3 [Concomitant]
  9. AMLODIPINE [Concomitant]
  10. AVAPRO [Concomitant]
  11. CALCIUM [Concomitant]

REACTIONS (5)
  - Haemoptysis [Recovered/Resolved]
  - Abdominal pain [Not Recovered/Not Resolved]
  - Stomatitis [Not Recovered/Not Resolved]
  - Cheilitis [Not Recovered/Not Resolved]
  - Rash macular [Not Recovered/Not Resolved]
